FAERS Safety Report 16072966 (Version 1)
Quarter: 2019Q1

REPORT INFORMATION
  Report Type: Spontaneous
  Country: ES (occurrence: ES)
  Receive Date: 20190314
  Receipt Date: 20190314
  Transmission Date: 20190418
  Serious: Yes (Other)
  Sender: FDA-Public Use
  Company Number: PHHY2019ES056454

PATIENT
  Age: 9 Year
  Sex: Male

DRUGS (2)
  1. AMOXICILLIN+CLAVULANIC ACID [Suspect]
     Active Substance: AMOXICILLIN\CLAVULANIC ACID
     Indication: LYMPHADENITIS
     Dosage: 3 ML, QD
     Route: 048
     Dates: start: 20190122, end: 20190131
  2. IBUPROFENO [Concomitant]
     Active Substance: IBUPROFEN
     Indication: LYMPHADENITIS
     Dosage: 7.5 ML, Q8H
     Route: 048
     Dates: start: 20190122

REACTIONS (1)
  - Angioedema [Recovered/Resolved]

NARRATIVE: CASE EVENT DATE: 20190131
